FAERS Safety Report 6170123-8 (Version None)
Quarter: 2009Q2

REPORT INFORMATION
  Report Type: 
  Country: None (occurrence: None)
  Receive Date: 20090428
  Receipt Date: 20090420
  Transmission Date: 20091009
  Serious: Yes (Other)
  Sender: FDA-Public Use
  Company Number: B0571949A

PATIENT
  Age: 63 Year
  Sex: Male

DRUGS (3)
  1. AVODART [Suspect]
     Route: 048
  2. ASPIRIN [Concomitant]
  3. UNSPECIFIED DRUGS [Concomitant]

REACTIONS (1)
  - HEPATIC ENZYME INCREASED [None]
